FAERS Safety Report 8812651 (Version 1)
Quarter: 2012Q4

REPORT INFORMATION
  Report Type: 
  Country: BR (occurrence: BR)
  Receive Date: 20120927
  Receipt Date: 20120927
  Transmission Date: 20130627
  Serious: Yes (Other)
  Sender: FDA-Public Use
  Company Number: PHHY2012BR083652

PATIENT
  Age: 77 Year
  Sex: Female

DRUGS (10)
  1. ALPRAZOLAM [Suspect]
  2. LOSARTAN POTASSIUM [Suspect]
  3. ROSUVASTATIN CALCIUM [Suspect]
  4. INDAPAMIDE [Concomitant]
  5. NEBIVOLOL [Concomitant]
  6. ACETYLSALICYLIC ACID [Concomitant]
  7. ESCITALOPRAM [Concomitant]
  8. AMITRIPTYLINE [Concomitant]
  9. PREDNISONE [Concomitant]
     Dosage: 5 mg, per day
  10. RISEDRONATE SODIUM [Concomitant]
     Dosage: 35 mg, QW

REACTIONS (3)
  - Pulmonary arterial hypertension [Recovering/Resolving]
  - Palpitations [Recovering/Resolving]
  - Dyspnoea [Recovering/Resolving]
